FAERS Safety Report 11750747 (Version 2)
Quarter: 2016Q2

REPORT INFORMATION
  Report Type: Report from Study
  Country: US (occurrence: US)
  Receive Date: 20151118
  Receipt Date: 20160404
  Transmission Date: 20160815
  Serious: Yes (Hospitalization, Other)
  Sender: FDA-Public Use
  Company Number: US-GILEAD-2015-0182705

PATIENT
  Age: 88 Year
  Sex: Male

DRUGS (1)
  1. RANOLAZINE [Suspect]
     Active Substance: RANOLAZINE
     Indication: ANGINA PECTORIS
     Dosage: 500 MG, UNK
     Route: 048

REACTIONS (7)
  - Stent placement [Unknown]
  - Chest pain [Unknown]
  - Memory impairment [Unknown]
  - Drug dose omission [Unknown]
  - Hypoacusis [Unknown]
  - Weight decreased [Unknown]
  - Arthritis [Not Recovered/Not Resolved]
